FAERS Safety Report 5906260-X (Version None)
Quarter: 2008Q4

REPORT INFORMATION
  Report Type: 
  Country: None (occurrence: None)
  Receive Date: 20081002
  Receipt Date: 20080920
  Transmission Date: 20090506
  Serious: Yes (Other)
  Sender: FDA-Public Use
  Company Number: CA-PFIZER INC-2008080066

PATIENT
  Sex: Male
  Weight: 86.363 kg

DRUGS (2)
  1. LYRICA [Suspect]
     Indication: NEURALGIA
     Route: 048
     Dates: start: 20080417, end: 20080822
  2. DICETEL [Concomitant]
     Dates: start: 20040201

REACTIONS (2)
  - ERECTILE DYSFUNCTION [None]
  - FEELING ABNORMAL [None]
